FAERS Safety Report 11224900 (Version 4)
Quarter: 2017Q1

REPORT INFORMATION
  Report Type: Spontaneous
  Country: US (occurrence: US)
  Receive Date: 20150629
  Receipt Date: 20170130
  Transmission Date: 20170428
  Serious: Yes (Death, Hospitalization)
  Sender: FDA-Public Use
  Company Number: US-PFIZER INC-2014334043

PATIENT
  Age: 76 Year
  Sex: Male
  Weight: 75 kg

DRUGS (41)
  1. AMITIZA [Concomitant]
     Active Substance: LUBIPROSTONE
     Dosage: 24 UG, 2X/DAY
     Route: 048
  2. BOOST [Concomitant]
     Active Substance: DIETARY SUPPLEMENT
     Dosage: UNK [0.04 GRAM-1 KCAL/ML]
     Route: 048
  3. BUMETANIDE. [Concomitant]
     Active Substance: BUMETANIDE
     Dosage: 1 MG, 2X/DAY
     Route: 048
  4. VITAMIN D3 [Concomitant]
     Active Substance: CHOLECALCIFEROL
     Dosage: 5000 IU, DAILY
     Route: 048
  5. FINASTERID [Concomitant]
     Active Substance: FINASTERIDE
     Dosage: 5 MG, DAILY
     Route: 048
  6. METHADONE [Concomitant]
     Active Substance: METHADONE HYDROCHLORIDE
     Dosage: 10 MG, 2X/DAY
     Route: 048
  7. NORCO [Concomitant]
     Active Substance: ACETAMINOPHEN\HYDROCODONE BITARTRATE
     Indication: PAIN
     Dosage: UNK, AS NEEDED [HYDROCODONE BITARTRATE-5 MG] [PARACETAMOL-325 MG]
  8. RAPAFLO [Concomitant]
     Active Substance: SILODOSIN
     Dosage: 8 MG, 1X/DAY
     Route: 048
  9. SYNTHROID [Concomitant]
     Active Substance: LEVOTHYROXINE SODIUM
     Dosage: 100 UG, 1X/DAY
     Route: 048
  10. VITAMIN D3 [Concomitant]
     Active Substance: CHOLECALCIFEROL
     Dosage: 5000 IU, DAILY
     Route: 048
  11. AFINITOR [Concomitant]
     Active Substance: EVEROLIMUS
     Indication: RENAL CANCER STAGE IV
     Dosage: 10 MG, DAILY
     Route: 048
     Dates: start: 20151202
  12. OPDIVO [Concomitant]
     Active Substance: NIVOLUMAB
     Indication: RENAL CANCER STAGE IV
     Dosage: 3 MG/KG, UNK
     Dates: start: 20160324
  13. ZITHROMAX [Concomitant]
     Active Substance: AZITHROMYCIN DIHYDRATE
     Dosage: 250 MG,
  14. CENTRUM [Concomitant]
     Active Substance: VITAMINS
     Dosage: UNK [3500 UNIT-18 MG-0.4 MG]
  15. LOMOTIL [Concomitant]
     Active Substance: ATROPINE SULFATE\DIPHENOXYLATE HYDROCHLORIDE
     Dosage: UNKUNKUNK [ATROPINE SULFATE 0.025 MG; DIPHENOXYLATE HYDROCHLORIDE-2.5 MG] MAX 8 TABS/DAY]
  16. METAMUCIL [Concomitant]
     Active Substance: PLANTAGO SEED
     Dosage: 1.7 G, 4X/DAY [Q. 6 HOURS]
     Route: 048
  17. OXYCODONE [Concomitant]
     Active Substance: OXYCODONE
     Indication: PAIN
     Dosage: 5 MG, AS NEEDED [1-2 TABS Q 4-6 HOURS PRN
     Route: 048
  18. OXYCONTIN [Concomitant]
     Active Substance: OXYCODONE HYDROCHLORIDE
     Dosage: 10 MG, 2X/DAY [Q. 12 HOURS]
     Route: 048
  19. ASPIRIN. [Concomitant]
     Active Substance: ASPIRIN
     Dosage: 81 MG, DAILY [ON HOLD]
     Route: 048
  20. CARDURA [Concomitant]
     Active Substance: DOXAZOSIN MESYLATE
     Dosage: 2 MG, DAILY
     Route: 048
  21. VITAMIN B12 [Concomitant]
     Active Substance: CYANOCOBALAMIN
     Dosage: 1000 UG, UNK
     Route: 060
  22. PANTOPRAZOLE [Concomitant]
     Active Substance: PANTOPRAZOLE SODIUM
     Dosage: 40 MG, DAILY
     Route: 048
  23. SAW PALMETTO /00833501/ [Concomitant]
     Active Substance: SAW PALMETTO
     Dosage: 450 MG, UNK
  24. CYCLOBENZAPRINE [Concomitant]
     Active Substance: CYCLOBENZAPRINE
     Indication: MUSCLE SPASMS
     Dosage: 5 MG, AS NEEDED [TID, PRN]
     Route: 048
  25. DOXAZOSIN [Concomitant]
     Active Substance: DOXAZOSIN\DOXAZOSIN MESYLATE
     Dosage: 2 MG, UNK
  26. HYDROMORPHONE [Concomitant]
     Active Substance: HYDROMORPHONE
     Indication: PAIN
     Dosage: 2 MG, AS NEEDED [EVERY 4-6 HOURS]
  27. ZOFRAN [Concomitant]
     Active Substance: ONDANSETRON HYDROCHLORIDE
     Dosage: 4 MG, UNK [Q. 6-8 HOURS]
     Route: 048
  28. METOPROLOL TARTRATE. [Concomitant]
     Active Substance: METOPROLOL TARTRATE
     Dosage: 25 MG, 2X/DAY
  29. AMLODIPINE [Concomitant]
     Active Substance: AMLODIPINE BESYLATE
     Dosage: 10 MG, DAILY
     Route: 048
  30. BENTYL [Concomitant]
     Active Substance: DICYCLOMINE HYDROCHLORIDE
     Dosage: 10 MG, AS NEEDED [1-2 P.O. THREE TIMES A DAY]
     Route: 048
  31. MOVANTIK [Concomitant]
     Active Substance: NALOXEGOL OXALATE
     Indication: CONSTIPATION
     Dosage: UNK UNK, AS NEEDED [1-2 TABLETS DAILY]
  32. NORCO [Concomitant]
     Active Substance: ACETAMINOPHEN\HYDROCODONE BITARTRATE
     Dosage: UNK, AS NEEDED [1-2 TABS Q.6 HOURS, QID]
  33. PRAVASTATIN. [Concomitant]
     Active Substance: PRAVASTATIN
     Dosage: 20 MG, DAILY [40 MG-1/2 P.O. Q. DAY]
     Route: 048
  34. SODIUM BICARBONATE. [Concomitant]
     Active Substance: SODIUM BICARBONATE
     Dosage: 650 MG, 2X/DAY [1/2 HOUR BEFORE BREAKFAST]
     Route: 048
  35. INLYTA [Suspect]
     Active Substance: AXITINIB
     Indication: RENAL CANCER STAGE IV
     Dosage: 5 MG, 2X/DAY
     Route: 048
     Dates: start: 20150120, end: 201511
  36. GLIPIZIDE. [Concomitant]
     Active Substance: GLIPIZIDE
     Dosage: 5 MG, 2X/DAY
     Route: 048
  37. ALPRAZOLAM. [Concomitant]
     Active Substance: ALPRAZOLAM
     Dosage: 0.5 MG, 1X/DAY [AT BEDTIME]
     Route: 048
  38. CARAFATE [Concomitant]
     Active Substance: SUCRALFATE
     Dosage: 10 ML, 4X/DAY [DO NOT TAKE WITHIN 4 HOURS OF SYNTHROID]
     Route: 048
  39. LEVEMIR [Concomitant]
     Active Substance: INSULIN DETEMIR
     Dosage: 10 IU, 2X/DAY
     Route: 058
  40. OXYCODONE-ACETAMINOPHEN [Concomitant]
     Active Substance: ACETAMINOPHEN\OXYCODONE HYDROCHLORIDE
     Dosage: UNK, 4X/DAY [1-2 Q.6 HOURS] [OXYCODONE 5 MG; ACETAMINOPHEN 325 MG]
     Route: 048
  41. XGEVA [Concomitant]
     Active Substance: DENOSUMAB
     Indication: RENAL CANCER STAGE IV
     Dosage: 120 MG EVERY 28 DAYS
     Dates: start: 20160204

REACTIONS (8)
  - Death [Fatal]
  - Epistaxis [Unknown]
  - Nausea [Unknown]
  - Hyponatraemia [Unknown]
  - Dysphonia [Not Recovered/Not Resolved]
  - Intervertebral disc compression [Unknown]
  - Diarrhoea [Recovering/Resolving]
  - Hypertension [Unknown]

NARRATIVE: CASE EVENT DATE: 20150123
